FAERS Safety Report 10693323 (Version 1)
Quarter: 2015Q1

REPORT INFORMATION
  Report Type: Spontaneous
  Country: US (occurrence: US)
  Receive Date: 20150106
  Receipt Date: 20150106
  Transmission Date: 20150720
  Serious: Yes (Other)
  Sender: FDA-Public Use
  Company Number: US-TEVA-531988USA

PATIENT
  Sex: Female

DRUGS (1)
  1. COPAXONE [Suspect]
     Active Substance: GLATIRAMER ACETATE
     Indication: MULTIPLE SCLEROSIS
     Route: 065

REACTIONS (6)
  - Dysuria [Unknown]
  - Paraesthesia [Unknown]
  - Hypoaesthesia [Unknown]
  - Feeling cold [Unknown]
  - Seizure [Recovered/Resolved]
  - Incontinence [Unknown]
